FAERS Safety Report 11297161 (Version 1)
Quarter: 2015Q3

REPORT INFORMATION
  Report Type: Spontaneous
  Country: US (occurrence: US)
  Receive Date: 20150722
  Receipt Date: 20150722
  Transmission Date: 20151125
  Serious: No
  Sender: FDA-Public Use
  Company Number: US-ELI_LILLY_AND_COMPANY-US201011005765

PATIENT
  Sex: Female

DRUGS (9)
  1. COREG [Concomitant]
     Active Substance: CARVEDILOL
     Dosage: 6.25 MG, 2/D
  2. ATACAND HCT [Concomitant]
     Active Substance: CANDESARTAN CILEXETIL\HYDROCHLOROTHIAZIDE
     Dosage: UNK, EACH MORNING
  3. OMEPRAZOLE. [Concomitant]
     Active Substance: OMEPRAZOLE
  4. VANTIN [Concomitant]
     Active Substance: CEFPODOXIME PROXETIL
  5. CRESTOR [Concomitant]
     Active Substance: ROSUVASTATIN CALCIUM
     Dosage: 5 MG, UNK
  6. VITAMIN B12 [Concomitant]
     Active Substance: CYANOCOBALAMIN
     Dosage: 1000 G, UNK
  7. TYLENOL [Concomitant]
     Active Substance: ACETAMINOPHEN
  8. VITAMIN D [Concomitant]
     Active Substance: CHOLECALCIFEROL
     Dosage: 50000 IU, WEEKLY (1/W)
  9. EVISTA [Suspect]
     Active Substance: RALOXIFENE HYDROCHLORIDE

REACTIONS (2)
  - Sinusitis fungal [Unknown]
  - Muscle spasms [Unknown]
